FAERS Safety Report 7374712-4 (Version None)
Quarter: 2011Q1

REPORT INFORMATION
  Report Type: 
  Country: None (occurrence: None)
  Receive Date: 20110325
  Receipt Date: 20100827
  Transmission Date: 20110831
  Serious: No
  Sender: FDA-Public Use
  Company Number: US-MYLANLABS-2010S1015733

PATIENT
  Age: 64 Year
  Sex: Male
  Weight: 88.45 kg

DRUGS (4)
  1. MORPHINE [Concomitant]
     Indication: BREAKTHROUGH PAIN
     Route: 048
  2. FENTANYL-100 [Suspect]
     Indication: BACK PAIN
     Dosage: CHANGED PATCHES Q2D
     Route: 062
     Dates: start: 20080101, end: 20100601
  3. FENTANYL-100 [Suspect]
     Dosage: CHANGED PATCHES Q2D
     Route: 062
     Dates: start: 20100601
  4. FENTANYL-100 [Suspect]
     Dosage: CHANGED PATCHES Q2D
     Route: 062
     Dates: start: 20100601, end: 20100601

REACTIONS (3)
  - DRUG EFFECT DECREASED [None]
  - DRUG WITHDRAWAL SYNDROME [None]
  - BACK PAIN [None]
